FAERS Safety Report 4426658-9 (Version None)
Quarter: 2004Q3

REPORT INFORMATION
  Report Type: 
  Country: None (occurrence: None)
  Receive Date: 20040816
  Receipt Date: 20040210
  Transmission Date: 20050211
  Serious: Yes (Hospitalization)
  Sender: FDA-Public Use
  Company Number: PHHO2004US02351

PATIENT
  Age: 44 Year
  Sex: Female
  Weight: 50 kg

DRUGS (2)
  1. TEGASEROD VS PLACEBO [Suspect]
     Indication: IRRITABLE BOWEL SYNDROME
     Dosage: 6 MG, BID
     Route: 048
     Dates: start: 20031006, end: 20031210
  2. TEGASEROD VS PLACEBO [Suspect]
     Route: 048
     Dates: start: 20040108, end: 20040201

REACTIONS (3)
  - BLADDER SUSPENSION [None]
  - CONCOMITANT DISEASE PROGRESSION [None]
  - VAGINAL HYSTERECTOMY [None]
